FAERS Safety Report 7951658-1 (Version None)
Quarter: 2011Q4

REPORT INFORMATION
  Report Type: 
  Country: None (occurrence: None)
  Receive Date: 20111201
  Receipt Date: 20111129
  Transmission Date: 20120403
  Serious: Yes (Hospitalization)
  Sender: FDA-Public Use
  Company Number: FR-ROCHE-1017191

PATIENT
  Age: 62 Year
  Sex: Male

DRUGS (4)
  1. VIRAFERONPEG [Suspect]
     Indication: HEPATITIS C
     Dates: start: 20030101, end: 20110822
  2. PEGASYS [Suspect]
     Indication: HEPATITIS C
     Route: 065
     Dates: start: 20030101, end: 20110822
  3. INCIVO [Suspect]
     Indication: HEPATITIS C
     Route: 048
     Dates: start: 20110601, end: 20110822
  4. COPEGUS [Suspect]
     Indication: HEPATITIS C
     Dates: start: 20030101, end: 20110822

REACTIONS (1)
  - TOXIC SKIN ERUPTION [None]
